FAERS Safety Report 5269019-5 (Version None)
Quarter: 2007Q1

REPORT INFORMATION
  Report Type: 
  Country: None (occurrence: None)
  Receive Date: 20070319
  Receipt Date: 20070306
  Transmission Date: 20070707
  Serious: Yes (Death)
  Sender: FDA-Public Use
  Company Number: US-JNJFOC-20070302395

PATIENT
  Age: 3 Month
  Sex: Female

DRUGS (3)
  1. PSEUDOEPHEDRINE HCL [Suspect]
     Indication: DRUG USE FOR UNKNOWN INDICATION
  2. DEXTROMETHORPHAN [Suspect]
     Indication: DRUG USE FOR UNKNOWN INDICATION
  3. VIAXIN [Concomitant]

REACTIONS (6)
  - CONVULSION [None]
  - DRUG TOXICITY [None]
  - HYPOTENSION [None]
  - PNEUMONIA [None]
  - PYREXIA [None]
  - TACHYCARDIA [None]
